FAERS Safety Report 18681530 (Version 2)
Quarter: 2021Q1

REPORT INFORMATION
  Report Type: Spontaneous
  Country: US (occurrence: US)
  Receive Date: 20201229
  Receipt Date: 20210106
  Transmission Date: 20210419
  Serious: No
  Sender: FDA-Public Use
  Company Number: US-MATRIXX INITIATIVES, INC.-2103610

PATIENT
  Sex: Male

DRUGS (1)
  1. ZICAM NOS [Suspect]
     Active Substance: ECHINACEA ANGUSTIFOLIA\HOMEOPATHICS\ZINC ACETATE\ZINC GLUCONATE OR HOMEOPATHICS\ZINC ACETATE\ZINC GLUCONATE

REACTIONS (4)
  - Discomfort [None]
  - Mental disorder [None]
  - Ageusia [None]
  - Anosmia [None]
